FAERS Safety Report 4922681-6 (Version None)
Quarter: 2006Q1

REPORT INFORMATION
  Report Type: 
  Country: None (occurrence: None)
  Receive Date: 20060224
  Receipt Date: 20060215
  Transmission Date: 20060701
  Serious: Yes (Life-Threatening)
  Sender: FDA-Public Use
  Company Number: DE-ABBOTT-06P-062-0325197-00

PATIENT
  Sex: Female
  Weight: 57.7 kg

DRUGS (10)
  1. KLACID [Suspect]
     Indication: HELICOBACTER INFECTION
     Route: 042
     Dates: start: 20051214, end: 20051214
  2. KLACID [Suspect]
     Indication: PYREXIA
     Route: 048
     Dates: end: 20051213
  3. KLACID [Suspect]
     Indication: CEREBROVASCULAR ACCIDENT PROPHYLAXIS
  4. PANTOPRAZOLE [Concomitant]
     Indication: HELICOBACTER INFECTION
     Route: 048
  5. AMOXICILLIN [Concomitant]
     Indication: HELICOBACTER INFECTION
     Route: 048
  6. METILDIGOXIN [Concomitant]
     Indication: DRUG USE FOR UNKNOWN INDICATION
     Route: 048
  7. LISINOPRIL [Concomitant]
     Indication: DRUG USE FOR UNKNOWN INDICATION
     Route: 048
  8. VERAPAMIL HYDROCHLORIDE [Concomitant]
     Indication: DRUG USE FOR UNKNOWN INDICATION
     Route: 048
  9. HYDROCHLOROTHIAZIDE [Concomitant]
     Indication: DRUG USE FOR UNKNOWN INDICATION
     Route: 048
  10. ENOXAPARIN SODIUM [Concomitant]
     Indication: DRUG USE FOR UNKNOWN INDICATION
     Route: 058

REACTIONS (3)
  - ELECTROCARDIOGRAM QT PROLONGED [None]
  - ELECTROENCEPHALOGRAM ABNORMAL [None]
  - VENTRICULAR FIBRILLATION [None]
